FAERS Safety Report 9050340 (Version 1)
Quarter: 2013Q1

REPORT INFORMATION
  Report Type: Spontaneous
  Country: IL (occurrence: IL)
  Receive Date: 20130205
  Receipt Date: 20130205
  Transmission Date: 20140127
  Serious: Yes (Hospitalization, Other)
  Sender: FDA-Public Use
  Company Number: IL-NAPPMUNDI-GBR-2013-0013111

PATIENT
  Sex: Male

DRUGS (1)
  1. BUTRANS 20MG TRANSDERMAL PATCH [Suspect]
     Indication: PAIN
     Dosage: 20 MCG, Q1H
     Route: 062
     Dates: start: 20130121, end: 20130122

REACTIONS (8)
  - Overdose [Recovering/Resolving]
  - Unresponsive to stimuli [Recovering/Resolving]
  - Aphasia [Recovering/Resolving]
  - Chest pain [Recovering/Resolving]
  - Dyspnoea [Recovering/Resolving]
  - Asthenia [Recovering/Resolving]
  - Somnolence [Recovering/Resolving]
  - Vomiting [Recovering/Resolving]
